FAERS Safety Report 7219586-7 (Version None)
Quarter: 2011Q1

REPORT INFORMATION
  Report Type: 
  Country: None (occurrence: None)
  Receive Date: 20110111
  Receipt Date: 20110107
  Transmission Date: 20110831
  Serious: Yes (Hospitalization, Other)
  Sender: FDA-Public Use
  Company Number: DE-ELI_LILLY_AND_COMPANY-DE200808004127

PATIENT
  Sex: Male
  Weight: 100 kg

DRUGS (2)
  1. GEMCITABINE HCL [Suspect]
     Dosage: 1000 MG/M2, (ABSOLUTE DOSE 1995) UNK
     Route: 065
     Dates: start: 20080619
  2. CETUXIMAB [Suspect]
     Dosage: 250 MG/M2, (ABSOLUTE 577.5)  UNKNOWN
     Route: 065
     Dates: start: 20080619

REACTIONS (5)
  - PYREXIA [None]
  - NAUSEA [None]
  - INFECTION [None]
  - SEPSIS [None]
  - LOCALISED INFECTION [None]
